FAERS Safety Report 8593544-2 (Version None)
Quarter: 2012Q3

REPORT INFORMATION
  Report Type: 
  Country: None (occurrence: None)
  Receive Date: 20120814
  Receipt Date: 20120808
  Transmission Date: 20120928
  Serious: Yes (Other)
  Sender: FDA-Public Use
  Company Number: US-PFIZER INC-2012193511

PATIENT
  Age: 66 Year
  Sex: Female

DRUGS (11)
  1. MEDROXYPROGESTERONE [Suspect]
     Indication: HORMONE REPLACEMENT THERAPY
     Dosage: UNK
  2. HUMIRA [Suspect]
     Indication: PSORIASIS
     Dosage: 40 MG, 1 IN 2 WEEK
     Route: 058
     Dates: start: 20110526, end: 20120601
  3. CLOBETASOL [Concomitant]
     Dosage: UNK
  4. PREMPRO [Suspect]
     Dosage: UNK
  5. IBUPROFEN SODIUM [Concomitant]
     Dosage: UNK
  6. ENALAPRILAT [Concomitant]
     Indication: HYPERTENSION
     Dosage: UNK
  7. SERTRALINE [Concomitant]
     Dosage: UNK
  8. CYCLOBENZAPRINE [Concomitant]
     Dosage: UNK
  9. DOXEPIN HYDROCHLORIDE [Concomitant]
     Dosage: UNK
  10. HYDROCHLOROTHIAZIDE [Concomitant]
     Indication: HYPERTENSION
     Dosage: UNK
  11. VICODIN [Concomitant]
     Dosage: UNK

REACTIONS (1)
  - NEOPLASM MALIGNANT [None]
